FAERS Safety Report 5664405-3 (Version None)
Quarter: 2008Q1

REPORT INFORMATION
  Report Type: 
  Country: None (occurrence: None)
  Receive Date: 20080311
  Receipt Date: 20080311
  Transmission Date: 20080703
  Serious: No
  Sender: FDA-Public Use
  Company Number: None

PATIENT
  Age: 47 Year
  Sex: Male

DRUGS (1)
  1. DILAUDID [Suspect]
     Dates: start: 20071031, end: 20071101

REACTIONS (2)
  - PRURITUS [None]
  - RASH [None]
